FAERS Safety Report 11438798 (Version 1)
Quarter: 2015Q3

REPORT INFORMATION
  Report Type: Spontaneous
  Country: US (occurrence: US)
  Receive Date: 20150901
  Receipt Date: 20150901
  Transmission Date: 20151125
  Serious: No
  Sender: FDA-Public Use
  Company Number: US-ROCHE-1153668

PATIENT
  Sex: Female

DRUGS (3)
  1. RIBASPHERE RIBAPAK [Suspect]
     Active Substance: RIBAVIRIN
     Indication: HEPATITIS C
     Route: 065
     Dates: start: 20121105
  2. PEGASYS [Suspect]
     Active Substance: PEGINTERFERON ALFA-2A
     Indication: HEPATITIS C
     Route: 058
     Dates: start: 20121105
  3. INCIVEK [Suspect]
     Active Substance: TELAPREVIR
     Indication: PRODUCT USED FOR UNKNOWN INDICATION
     Route: 065
     Dates: start: 20121105

REACTIONS (16)
  - Headache [Unknown]
  - Memory impairment [Unknown]
  - Hypoaesthesia [Unknown]
  - Hallucination, visual [Unknown]
  - Dysgeusia [Unknown]
  - Vomiting [Unknown]
  - Weight decreased [Unknown]
  - Dry mouth [Unknown]
  - Glossodynia [Unknown]
  - Nausea [Unknown]
  - Lip disorder [Unknown]
  - Photophobia [Unknown]
  - Chromaturia [Unknown]
  - Ulcer [Unknown]
  - Rash [Unknown]
  - Pyrexia [Unknown]
